FAERS Safety Report 7724976-X (Version None)
Quarter: 2011Q3

REPORT INFORMATION
  Report Type: 
  Country: None (occurrence: None)
  Receive Date: 20110901
  Receipt Date: 20110901
  Transmission Date: 20111222
  Serious: Yes (Hospitalization)
  Sender: FDA-Public Use
  Company Number: DE-ABBOTT-11P-062-0845288-00

PATIENT
  Sex: Female
  Weight: 72 kg

DRUGS (4)
  1. CORTISONE ACETATE [Concomitant]
     Indication: PRODUCT USED FOR UNKNOWN INDICATION
     Dosage: 5 MG DAILY
  2. MESALAMINE [Concomitant]
     Indication: PRODUCT USED FOR UNKNOWN INDICATION
     Dates: start: 20071101
  3. PREDNISOLONE [Concomitant]
     Indication: PRODUCT USED FOR UNKNOWN INDICATION
     Dosage: 5 MG DAILY DOSE
     Dates: start: 20100930
  4. HUMIRA [Suspect]
     Indication: CROHN'S DISEASE
     Route: 058
     Dates: start: 20100805, end: 20110714

REACTIONS (4)
  - GASTROINTESTINAL STOMA COMPLICATION [None]
  - ANAL FISTULA [None]
  - FEMALE GENITAL TRACT FISTULA [None]
  - GASTROINTESTINAL PERFORATION [None]
